FAERS Safety Report 5382219-9 (Version None)
Quarter: 2007Q3

REPORT INFORMATION
  Report Type: 
  Country: None (occurrence: None)
  Receive Date: 20070709
  Receipt Date: 20070628
  Transmission Date: 20080115
  Serious: Yes (Other)
  Sender: FDA-Public Use
  Company Number: US-JNJFOC-20070606743

PATIENT
  Age: 73 Year
  Sex: Male

DRUGS (4)
  1. KETOCONAZOLE [Suspect]
     Indication: DRUG USE FOR UNKNOWN INDICATION
     Route: 065
  2. STATINS [Interacting]
     Indication: DRUG USE FOR UNKNOWN INDICATION
     Route: 065
  3. LEUPROLIDE ACETATE [Concomitant]
     Route: 065
  4. BICALUTAMIDE [Concomitant]
     Route: 065

REACTIONS (4)
  - DRUG INTERACTION [None]
  - HEPATITIS [None]
  - MUSCULAR WEAKNESS [None]
  - RHABDOMYOLYSIS [None]
